FAERS Safety Report 23837415 (Version 3)
Quarter: 2025Q2

REPORT INFORMATION
  Report Type: Report from Study
  Country: US (occurrence: US)
  Receive Date: 20240509
  Receipt Date: 20250605
  Transmission Date: 20250717
  Serious: Yes (Life-Threatening, Hospitalization)
  Sender: MARINUS PHARMACEUTICALS
  Company Number: US-MARINUS PHARMACEUTICALS, INC.-MAR2024000065

PATIENT
  Age: 16 Year

DRUGS (16)
  1. GANAXOLONE [Suspect]
     Active Substance: GANAXOLONE
     Indication: Seizure
     Route: 065
  2. DIVALPROEX SODIUM [Concomitant]
     Active Substance: DIVALPROEX SODIUM
     Indication: Seizure
     Route: 065
  3. CLOBAZAM [Concomitant]
     Active Substance: CLOBAZAM
     Indication: Seizure
     Route: 065
  4. SOTICLESTAT [Concomitant]
     Active Substance: SOTICLESTAT
     Indication: Seizure
     Route: 065
  5. IMMUNE GLOBULIN NOS [Concomitant]
     Active Substance: IMMUNE GLOBULIN NOS
     Indication: Seizure
     Route: 065
     Dates: start: 20120101
  6. SELENIUM [Concomitant]
     Active Substance: SELENIUM
     Indication: Ketogenic diet
     Route: 065
     Dates: start: 20160701
  7. ALPHA LIPOIC [Concomitant]
     Indication: Mitochondrial toxicity
     Route: 065
     Dates: start: 20081101
  8. DIETARY SUPPLEMENT\UBIDECARENONE [Concomitant]
     Active Substance: DIETARY SUPPLEMENT\UBIDECARENONE
     Indication: Mitochondrial toxicity
     Dates: start: 20081101
  9. FISH OIL\OMEGA-3 FATTY ACIDS [Concomitant]
     Active Substance: FISH OIL\OMEGA-3 FATTY ACIDS
     Indication: Ketogenic diet
     Route: 065
     Dates: start: 20170701
  10. CENTRUM FORTE [Concomitant]
     Indication: Ketogenic diet
     Route: 065
     Dates: start: 20170701
  11. CALCIUM CITRATE [Concomitant]
     Active Substance: CALCIUM CITRATE
     Indication: Nutritional supplementation
     Route: 065
  12. CARNITOR [Concomitant]
     Active Substance: LEVOCARNITINE
     Indication: Mitochondrial toxicity
     Route: 065
     Dates: start: 20081101
  13. CARNITOR [Concomitant]
     Active Substance: LEVOCARNITINE
     Route: 065
     Dates: start: 20081101
  14. CREATINE [Concomitant]
     Active Substance: CREATINE
     Indication: Mitochondrial toxicity
     Route: 065
     Dates: start: 20081101
  15. CHOLINE\INOSITOL [Concomitant]
     Active Substance: CHOLINE\INOSITOL
     Indication: Ketogenic diet
     Route: 065
     Dates: start: 20200102
  16. POTASSIUM CITRATE [Concomitant]
     Active Substance: POTASSIUM CITRATE
     Indication: Ketogenic diet

REACTIONS (3)
  - Blood pressure fluctuation [Recovered/Resolved]
  - Respiratory failure [Recovered/Resolved]
  - Sepsis [Recovered/Resolved]

NARRATIVE: CASE EVENT DATE: 20240109
